FAERS Safety Report 23636269 (Version 1)
Quarter: 2024Q1

REPORT INFORMATION
  Report Type: Report from Study
  Country: US (occurrence: US)
  Receive Date: 20240315
  Receipt Date: 20240315
  Transmission Date: 20240410
  Serious: Yes (Hospitalization)
  Sender: FDA-Public Use
  Company Number: US-002147023-NVSC2024US056238

PATIENT
  Sex: Female

DRUGS (1)
  1. GLEEVEC [Suspect]
     Active Substance: IMATINIB MESYLATE
     Indication: Philadelphia positive chronic myeloid leukaemia
     Dosage: UNK, (STARTED IN LAST SEP)
     Route: 048

REACTIONS (5)
  - Peripheral swelling [Unknown]
  - Heart rate irregular [Recovered/Resolved]
  - Dyspnoea [Unknown]
  - Fluid retention [Unknown]
  - Pruritus [Unknown]
